FAERS Safety Report 23064521 (Version 2)
Quarter: 2023Q4

REPORT INFORMATION
  Report Type: Spontaneous
  Country: JP (occurrence: None)
  Receive Date: 20231013
  Receipt Date: 20231024
  Transmission Date: 20240110
  Serious: Yes (Disabling)
  Sender: FDA-Public Use
  Company Number: 2023A230309

PATIENT
  Age: 82 Year
  Sex: Male

DRUGS (6)
  1. ONDEXXYA [Suspect]
     Active Substance: ANDEXANET ALFA
     Dosage: 400 MG AT A RATE OF 30 MG/MIN FOLLOWED BY 480 MG AT A RATE OF 4 MG/MIN IN 2 HOURS
     Route: 042
     Dates: start: 20230427, end: 20230427
  2. ELIQUIS [Suspect]
     Active Substance: APIXABAN
     Dosage: DOSE UNKNOWN
     Route: 048
     Dates: end: 20230427
  3. ELIQUIS [Suspect]
     Active Substance: APIXABAN
     Dosage: DOSE UNKNOWN
     Route: 048
     Dates: start: 20230429, end: 20230429
  4. JANUVIA [Concomitant]
     Active Substance: SITAGLIPTIN PHOSPHATE
     Dosage: DOSE UNKNOWN
  5. ATORVASTATIN [Concomitant]
     Active Substance: ATORVASTATIN
     Dosage: DOSE UNKNOWN
  6. RABEPRAZOLE SODIUM [Concomitant]
     Active Substance: RABEPRAZOLE SODIUM
     Dosage: DOSE UNKNOWN

REACTIONS (1)
  - No adverse event [Unknown]
